FAERS Safety Report 25232466 (Version 1)
Quarter: 2025Q2

REPORT INFORMATION
  Report Type: Spontaneous
  Country: US (occurrence: US)
  Receive Date: 20250423
  Receipt Date: 20250423
  Transmission Date: 20250716
  Serious: No
  Sender: SANOFI AVENTIS
  Company Number: US-SA-2025SA064438

PATIENT
  Age: 53 Year

DRUGS (5)
  1. LANTUS SOLOSTAR [Suspect]
     Active Substance: INSULIN GLARGINE
     Indication: Blood glucose increased
     Dosage: 70 U, TID
     Route: 058
  2. LANTUS SOLOSTAR [Suspect]
     Active Substance: INSULIN GLARGINE
     Indication: Insulin therapy
  3. LANTUS SOLOSTAR [Suspect]
     Active Substance: INSULIN GLARGINE
     Indication: Type 2 diabetes mellitus
  4. ADMELOG [Suspect]
     Active Substance: INSULIN LISPRO
     Indication: Blood glucose increased
     Dosage: 60 U, QD
     Route: 058
  5. ADMELOG [Suspect]
     Active Substance: INSULIN LISPRO
     Indication: Insulin therapy

REACTIONS (1)
  - Off label use [Unknown]
